FAERS Safety Report 4712244-X (Version None)
Quarter: 2005Q3

REPORT INFORMATION
  Report Type: 
  Country: None (occurrence: None)
  Receive Date: 20050712
  Receipt Date: 20031224
  Transmission Date: 20060218
  Serious: Yes (Death)
  Sender: FDA-Public Use
  Company Number: US-GLAXOSMITHKLINE-B0318652A

PATIENT
  Age: 29 Year
  Sex: Male

DRUGS (2)
  1. MELPHALAN [Suspect]
     Dosage: 90MGM2 PER DAY
     Route: 042
     Dates: start: 20030607, end: 20030608
  2. ETOPOSIDE [Suspect]
     Dosage: 200MGM2 PER DAY

REACTIONS (5)
  - CARDIAC FAILURE [None]
  - DIARRHOEA [None]
  - ENTEROCOLITIS HAEMORRHAGIC [None]
  - RENAL FAILURE [None]
  - RESPIRATORY FAILURE [None]
